FAERS Safety Report 11255747 (Version 1)
Quarter: 2015Q3

REPORT INFORMATION
  Report Type: Spontaneous
  Country: NO (occurrence: NO)
  Receive Date: 20150709
  Receipt Date: 20150709
  Transmission Date: 20151125
  Serious: Yes (Death)
  Sender: FDA-Public Use
  Company Number: PHHY2015NO077208

PATIENT
  Age: 72 Year
  Sex: Female

DRUGS (1)
  1. PARACETAMOL [Suspect]
     Active Substance: ACETAMINOPHEN
     Indication: PYREXIA
     Dosage: 20 G (APPROXIMATELY 20 G DURING A WEEKS TIME)
     Route: 048
     Dates: start: 201502, end: 201502

REACTIONS (3)
  - Hepatic failure [Fatal]
  - Accidental overdose [Fatal]
  - Renal failure [Fatal]

NARRATIVE: CASE EVENT DATE: 201502
